FAERS Safety Report 12549308 (Version 4)
Quarter: 2016Q4

REPORT INFORMATION
  Report Type: Other
  Country: CA (occurrence: CA)
  Receive Date: 20160712
  Receipt Date: 20161108
  Transmission Date: 20170207
  Serious: Yes (Hospitalization, Other)
  Sender: FDA-Public Use
  Company Number: CA-SHIRE-CA201608102

PATIENT
  Age: 62 Year
  Sex: Female

DRUGS (4)
  1. REVESTIVE [Suspect]
     Active Substance: TEDUGLUTIDE
     Dosage: 3.2 MG, UNKNOWN
     Route: 058
  2. REVESTIVE [Suspect]
     Active Substance: TEDUGLUTIDE
     Dosage: 3.1 MG, 1X/DAY:QD
     Route: 058
  3. REVESTIVE [Suspect]
     Active Substance: TEDUGLUTIDE
     Indication: SHORT-BOWEL SYNDROME
     Dosage: 3.1 MG, 1X/DAY:QD
     Route: 058
     Dates: start: 20160622, end: 20160626
  4. REVESTIVE [Suspect]
     Active Substance: TEDUGLUTIDE
     Dosage: 2.35 MG, UNKNOWN
     Route: 058
     Dates: start: 20160814, end: 20160822

REACTIONS (34)
  - Swollen tongue [Recovered/Resolved]
  - Faecal volume decreased [Unknown]
  - Faeces discoloured [Unknown]
  - Body temperature increased [Unknown]
  - Gastrointestinal motility disorder [Unknown]
  - Dysuria [Unknown]
  - Skin discomfort [Unknown]
  - Pallor [Unknown]
  - Swelling face [Not Recovered/Not Resolved]
  - Spinal compression fracture [Unknown]
  - Arthralgia [Unknown]
  - Glossodynia [Not Recovered/Not Resolved]
  - Joint swelling [Recovered/Resolved]
  - Dysphagia [Unknown]
  - Pharyngeal oedema [Unknown]
  - Paraesthesia oral [Not Recovered/Not Resolved]
  - Micturition urgency [Unknown]
  - Back pain [Unknown]
  - Stoma complication [Not Recovered/Not Resolved]
  - Dumping syndrome [Unknown]
  - Serum ferritin decreased [Unknown]
  - Lip disorder [Unknown]
  - Depressed mood [Unknown]
  - Tongue discolouration [Unknown]
  - Peripheral swelling [Not Recovered/Not Resolved]
  - Weight decreased [Unknown]
  - Tearfulness [Unknown]
  - Hypersensitivity [Unknown]
  - Nausea [Unknown]
  - Intestinal obstruction [Recovered/Resolved]
  - Abnormal faeces [Unknown]
  - Haemoglobin abnormal [Unknown]
  - Drug effect decreased [Unknown]
  - Drug dose omission [Unknown]

NARRATIVE: CASE EVENT DATE: 2016
